FAERS Safety Report 10877477 (Version 1)
Quarter: 2015Q1

REPORT INFORMATION
  Report Type: Report from Study
  Country: SK (occurrence: SK)
  Receive Date: 20150302
  Receipt Date: 20150302
  Transmission Date: 20150721
  Serious: Yes (Death)
  Sender: FDA-Public Use
  Company Number: SK-PFIZER INC-2015069370

PATIENT

DRUGS (38)
  1. CYTARABINE. [Suspect]
     Active Substance: CYTARABINE
     Dosage: 15 MG/M2, CYCLIC (CONSOLIDATION - ON DAYS 11, 25, 56)
     Route: 037
  2. METHOTREXATE SODIUM. [Suspect]
     Active Substance: METHOTREXATE SODIUM
     Dosage: UNK, CYCLIC (INTENSIFICATION - ON DAY 22)
     Route: 037
  3. VINCRISTINE [Suspect]
     Active Substance: VINCRISTINE
     Dosage: 1.5 MG/M2, CYCLIC (INTENSIFICATION - ON DAYS 1, 8, 15)
  4. VINCRISTINE [Suspect]
     Active Substance: VINCRISTINE
     Dosage: 1.5 MG/M2, CYCLIC (FINAL INTENSIFICATION - ON DAYS 1, 8, 15)
  5. PREDNISONE. [Suspect]
     Active Substance: PREDNISONE
     Dosage: 60 MG/M2, CYCLIC (INTENSIFICATION - ON DAYS 1-15)
  6. L-ASPARAGINASE [Suspect]
     Active Substance: ASPARAGINASE
     Indication: ACUTE LYMPHOCYTIC LEUKAEMIA
     Dosage: 10000 IU/M2, CYCLIC (INDUCTION - ON DAYS 29-38)
  7. VUMON [Suspect]
     Active Substance: TENIPOSIDE
     Indication: ACUTE LYMPHOCYTIC LEUKAEMIA
     Dosage: 50 MG/M2, CYCLIC (CONSOLIDATION - ON DAYS 25, 29, 32, 36)
  8. METHOTREXATE SODIUM. [Suspect]
     Active Substance: METHOTREXATE SODIUM
     Dosage: 12 MG/M2, CYCLIC (CONSOLIDATION - ON DAYS 11, 25, 56)
     Route: 037
  9. METHOTREXATE SODIUM. [Suspect]
     Active Substance: METHOTREXATE SODIUM
     Dosage: 5 G/M2 (HIGH DOSE), CYCLIC (INTENSIFICATION)
  10. METHOTREXATE SODIUM. [Suspect]
     Active Substance: METHOTREXATE SODIUM
     Dosage: 15 MG/M2, CYCLIC (FINAL INTENSIFICATION - ON DAYS 78-82 AND ON DAY 85, 89)
     Route: 042
  11. VUMON [Suspect]
     Active Substance: TENIPOSIDE
     Dosage: 50 MG/M2, CYCLIC (FINAL INTENSIFICATION)
  12. METHOTREXATE SODIUM. [Suspect]
     Active Substance: METHOTREXATE SODIUM
     Dosage: 15 MG/M2, CYCLIC (INTENSIFICATION - ON DAYS 67-71)
     Route: 042
  13. METHOTREXATE SODIUM. [Suspect]
     Active Substance: METHOTREXATE SODIUM
     Dosage: 15 MG/M2, CYCLIC (MAINTENANCE - WEEKLY ON DAYS 15-84)
     Route: 048
  14. PREDNISONE. [Suspect]
     Active Substance: PREDNISONE
     Dosage: 60 MG/M2, CYCLIC (MAINTENANCE - ON DAYS 1-8)
  15. METHOTREXATE SODIUM. [Suspect]
     Active Substance: METHOTREXATE SODIUM
     Dosage: UNK, CYCLIC (CONSOLIDATION - ON DAY 1 AND FROM DAY 46)
     Route: 037
  16. VINCRISTINE [Suspect]
     Active Substance: VINCRISTINE
     Dosage: 1.5 MG/M2, CYCLIC (MAINTENANCE - ON DAYS 1-8)
  17. PREDNISONE. [Suspect]
     Active Substance: PREDNISONE
     Dosage: 60 MG/M2, CYCLIC (FINAL INTENSIFICATION - ON DAYS 1-15)
  18. MERCAPTOPURINE. [Suspect]
     Active Substance: MERCAPTOPURINE
     Dosage: 150 MG/M2, CYCLIC (INTENSIFICATION - ON DAYS 32-36)
  19. MERCAPTOPURINE. [Suspect]
     Active Substance: MERCAPTOPURINE
     Dosage: 150 MG/M2, CYCLIC (FINAL INTENSIFICATION - ON DAYS 22-26 AND 50-54)
  20. CYTARABINE. [Suspect]
     Active Substance: CYTARABINE
     Dosage: 50 MG/M2, CYCLIC (CONSOLIDATION - ON DAYS 25, 29, 32, 36)
  21. CYTARABINE. [Suspect]
     Active Substance: CYTARABINE
     Dosage: 50 MG/M2, CYCLIC (FINAL INTENSIFICATION - ON DAYS 87-82 AND 85-59)
  22. METHOTREXATE SODIUM. [Suspect]
     Active Substance: METHOTREXATE SODIUM
     Dosage: 5 G/M2 (HIGH DOSE), CYCLIC (CONSOLIDATION)
  23. VINCRISTINE [Suspect]
     Active Substance: VINCRISTINE
     Indication: ACUTE LYMPHOCYTIC LEUKAEMIA
     Dosage: 1.5 MG/M2, CYCLIC (INDUCTION - ON DAYS 1,8,15,22)
  24. PREDNISONE. [Suspect]
     Active Substance: PREDNISONE
     Indication: ACUTE LYMPHOCYTIC LEUKAEMIA
     Dosage: 60 MG/M2, CYCLIC (INDUCTION - ON DAYS 1-22)
  25. CYCLOPHOSPHAMIDE. [Suspect]
     Active Substance: CYCLOPHOSPHAMIDE
     Indication: ACUTE LYMPHOCYTIC LEUKAEMIA
     Dosage: 600 MG/M2, CYCLIC (INTENSIFICATION - ON DAY 1)
  26. CYTARABINE. [Suspect]
     Active Substance: CYTARABINE
     Indication: ACUTE LYMPHOCYTIC LEUKAEMIA
     Dosage: 15 MG/M2, CYCLIC (INDUCTION - ON DAY 1)
     Route: 037
  27. METHOTREXATE SODIUM. [Suspect]
     Active Substance: METHOTREXATE SODIUM
     Indication: ACUTE LYMPHOCYTIC LEUKAEMIA
     Dosage: 12 MG/M2, CYCLIC (INDUCTION - ON DAY 1)
     Route: 037
  28. HYDROCORTISONE SODIUM SUCCINATE [Suspect]
     Active Substance: HYDROCORTISONE SODIUM SUCCINATE
     Indication: ACUTE LYMPHOCYTIC LEUKAEMIA
     Dosage: 15 MG/M2, CYCLIC (INDUCTION - ON DAY 1)
     Route: 037
  29. ALLOPURINOL. [Suspect]
     Active Substance: ALLOPURINOL
     Dosage: 10 MG/M2, CYCLIC (FINAL INTENSIFICATION - ON DAYS 36-40 AND 64-68)
  30. CYCLOPHOSPHAMIDE. [Suspect]
     Active Substance: CYCLOPHOSPHAMIDE
     Dosage: 600 MG/M2, CYCLIC (FINAL INTENSIFICATION - ON DAYS 22-26 AND 50-54)
  31. CYTARABINE. [Suspect]
     Active Substance: CYTARABINE
     Dosage: 50 MG/M2, CYCLIC (INTENSIFICATION - ON DAYS 45, 50, 53, 57)
  32. MERCAPTOPURINE. [Suspect]
     Active Substance: MERCAPTOPURINE
     Dosage: 90 MG/M2, CYCLIC (MAINTENANCE - DAILY ON DAYS 15-84)
  33. VUMON [Suspect]
     Active Substance: TENIPOSIDE
     Dosage: 50 MG/M2, CYCLIC (INTENSIFICATION - ON DAYS 45, 50, 53, 57)
  34. DOXORUBICIN HCL [Suspect]
     Active Substance: DOXORUBICIN HYDROCHLORIDE
     Indication: ACUTE LYMPHOCYTIC LEUKAEMIA
     Dosage: 30 MG/M2, CYCLIC (INDUCTION - ON DAY 1)
  35. DOXORUBICIN HCL [Suspect]
     Active Substance: DOXORUBICIN HYDROCHLORIDE
     Dosage: 30 MG/M2, CYCLIC (INTENSIFICATION - ON DAY 1)
  36. MERCAPTOPURINE. [Suspect]
     Active Substance: MERCAPTOPURINE
     Indication: ACUTE LYMPHOCYTIC LEUKAEMIA
     Dosage: 150 MG/M2, CYCLIC (CONSOLIDATION - ON DAYS 11-15 AND 35-39)
  37. ALLOPURINOL. [Suspect]
     Active Substance: ALLOPURINOL
     Indication: ACUTE LYMPHOCYTIC LEUKAEMIA
     Dosage: 10 MG/M2, CYCLIC (CONSOLIDATION - ON DAYS 11-15 AND 35-39)
  38. ALLOPURINOL. [Suspect]
     Active Substance: ALLOPURINOL
     Dosage: 10 MG/M2, CYCLIC (INTENSIFICATION - ON DAYS 32-36)

REACTIONS (1)
  - Pancreatitis acute [Fatal]
